FAERS Safety Report 14188200 (Version 2)
Quarter: 2017Q4

REPORT INFORMATION
  Report Type: Spontaneous
  Country: FI (occurrence: FI)
  Receive Date: 20171114
  Receipt Date: 20171117
  Transmission Date: 20180321
  Serious: Yes (Hospitalization, Other)
  Sender: FDA-Public Use
  Company Number: FI-009507513-1711FIN003981

PATIENT
  Age: 49 Year
  Sex: Female

DRUGS (9)
  1. OXYNORM [Concomitant]
     Active Substance: OXYCODONE HYDROCHLORIDE
     Dosage: WHEN NEEDED
  2. KEYTRUDA [Suspect]
     Active Substance: PEMBROLIZUMAB
     Indication: MICROSATELLITE INSTABILITY CANCER
     Dosage: UNK
     Route: 041
     Dates: start: 20171025, end: 20171025
  3. KLEXANE [Concomitant]
     Active Substance: ENOXAPARIN
  4. SOMAC [Concomitant]
     Active Substance: PANTOPRAZOLE SODIUM
     Dosage: UNK, ONCE A DAY
  5. OXYCONTIN [Concomitant]
     Active Substance: OXYCODONE HYDROCHLORIDE
     Dosage: 160+160+160 MG
  6. KEYTRUDA [Suspect]
     Active Substance: PEMBROLIZUMAB
     Indication: SMALL INTESTINE CARCINOMA
  7. CAPECITABINE (+) OXALIPLATIN [Concomitant]
     Active Substance: CAPECITABINE\OXALIPLATIN
  8. FRAGMIN [Concomitant]
     Active Substance: DALTEPARIN SODIUM
     Indication: VASCULAR OCCLUSION
     Dosage: UNK, ONCE A DAY
  9. LYRICA [Concomitant]
     Active Substance: PREGABALIN
     Dosage: 75+225 MG

REACTIONS (10)
  - Pleural effusion [Recovered/Resolved]
  - C-reactive protein increased [Recovered/Resolved]
  - Dizziness [Recovered/Resolved]
  - Blood thromboplastin decreased [Recovered/Resolved]
  - Pyrexia [Recovered/Resolved]
  - Vomiting [Recovered/Resolved]
  - Product use in unapproved indication [Unknown]
  - Ascites [Recovered/Resolved]
  - Eastern Cooperative Oncology Group performance status worsened [Recovered/Resolved]
  - Hypoalbuminaemia [Recovered/Resolved]

NARRATIVE: CASE EVENT DATE: 2017
